FAERS Safety Report 9011581 (Version 1)
Quarter: 2013Q1

REPORT INFORMATION
  Report Type: Spontaneous
  Country: US (occurrence: US)
  Receive Date: 20130108
  Receipt Date: 20130108
  Transmission Date: 20140127
  Serious: Yes (Hospitalization, Other)
  Sender: FDA-Public Use
  Company Number: US-009507513-1301USA001526

PATIENT
  Age: 70 Year
  Sex: 0

DRUGS (2)
  1. MONTELUKAST SODIUM [Suspect]
     Dosage: PRN, INHALATION
  2. FLOVENT [Suspect]

REACTIONS (6)
  - Leukopenia [Unknown]
  - Nausea [Unknown]
  - Implant site reaction [Unknown]
  - Hiatus hernia [Unknown]
  - Haemolytic anaemia [Unknown]
  - Drug interaction [Unknown]
